FAERS Safety Report 17489488 (Version 9)
Quarter: 2020Q3

REPORT INFORMATION
  Report Type: Report from Study
  Country: US (occurrence: US)
  Receive Date: 20200303
  Receipt Date: 20200722
  Transmission Date: 20201102
  Serious: Yes (Other)
  Sender: FDA-Public Use
  Company Number: NVSC2020US059885

PATIENT
  Age: 77 Year
  Sex: Male

DRUGS (2)
  1. BEOVU [Suspect]
     Active Substance: BROLUCIZUMAB-DBLL
     Indication: NEOVASCULAR AGE-RELATED MACULAR DEGENERATION
     Dosage: 6 MG, ONCE/SINGLE
     Route: 047
     Dates: start: 20200129
  2. BEOVU [Suspect]
     Active Substance: BROLUCIZUMAB-DBLL
     Dosage: UNK
     Route: 065
     Dates: start: 20200303

REACTIONS (8)
  - Eye swelling [Unknown]
  - Retinal tear [Not Recovered/Not Resolved]
  - Non-infectious endophthalmitis [Unknown]
  - Eye inflammation [Unknown]
  - Eye injury [Unknown]
  - Eye pain [Unknown]
  - Ocular hyperaemia [Unknown]
  - Blindness [Unknown]

NARRATIVE: CASE EVENT DATE: 20200307
